FAERS Safety Report 7414248-5 (Version None)
Quarter: 2011Q2

REPORT INFORMATION
  Report Type: 
  Country: None (occurrence: None)
  Receive Date: 20110414
  Receipt Date: 20110330
  Transmission Date: 20111010
  Serious: Yes (Other)
  Sender: FDA-Public Use
  Company Number: US-CELGENEUS-163-21880-11040116

PATIENT
  Sex: Female
  Weight: 87.168 kg

DRUGS (12)
  1. REVLIMID [Suspect]
     Indication: MULTIPLE MYELOMA
     Dosage: 10 MILLIGRAM
     Route: 048
     Dates: start: 20110209
  2. REVLIMID [Suspect]
     Dosage: 15 MILLIGRAM
     Route: 048
     Dates: start: 20110406
  3. CARTIA XT [Concomitant]
     Route: 065
  4. WOMEN'S VITAMINS [Concomitant]
     Route: 065
  5. VITAMIN D [Concomitant]
     Route: 065
  6. DEXAMETHASONE [Concomitant]
     Route: 065
  7. WARFARIN [Concomitant]
     Route: 065
  8. ADVAIR HFA [Concomitant]
     Route: 065
  9. FAMCICLOVIR [Concomitant]
     Route: 065
  10. FERROUS SULFATE [Concomitant]
     Route: 065
  11. REVLIMID [Suspect]
     Dosage: 25 MILLIGRAM
     Route: 048
     Dates: start: 20110309
  12. CALCIUM [Concomitant]
     Route: 065

REACTIONS (3)
  - NAUSEA [None]
  - BALANCE DISORDER [None]
  - TREMOR [None]
